FAERS Safety Report 16868617 (Version 2)
Quarter: 2019Q4

REPORT INFORMATION
  Report Type: Spontaneous
  Country: US (occurrence: US)
  Receive Date: 20190930
  Receipt Date: 20191018
  Transmission Date: 20200122
  Serious: No
  Sender: FDA-Public Use
  Company Number: US-PFIZER INC-2019418235

PATIENT
  Age: 66 Year
  Sex: Female

DRUGS (1)
  1. IBRANCE [Suspect]
     Active Substance: PALBOCICLIB
     Indication: BREAST CANCER FEMALE
     Dosage: 100 MG, CYCLIC [ 21 DAYS ON A 28 DAY CYCLE]
     Route: 048
     Dates: start: 20190904

REACTIONS (4)
  - Lip swelling [Unknown]
  - Fatigue [Unknown]
  - Headache [Unknown]
  - Paraesthesia oral [Not Recovered/Not Resolved]
